FAERS Safety Report 15254126 (Version 2)
Quarter: 2018Q4

REPORT INFORMATION
  Report Type: Spontaneous
  Country: IS (occurrence: IS)
  Receive Date: 20180808
  Receipt Date: 20181001
  Transmission Date: 20190204
  Serious: Yes (Other)
  Sender: FDA-Public Use
  Company Number: IS-BAUSCH-BL-2018-021060

PATIENT
  Age: 77 Year
  Sex: Female

DRUGS (4)
  1. CONTALGIN [Suspect]
     Active Substance: MORPHINE SULFATE
     Indication: BACK PAIN
     Route: 065
  2. PARACETAMOL [Concomitant]
     Active Substance: ACETAMINOPHEN
     Indication: BACK PAIN
  3. TRADOLAN [Suspect]
     Active Substance: TRAMADOL
     Indication: BACK PAIN
     Route: 065
  4. CODEINE W/PARACETAMOL [Suspect]
     Active Substance: ACETAMINOPHEN\CODEINE PHOSPHATE
     Indication: BACK PAIN
     Route: 065

REACTIONS (1)
  - Hypothalamo-pituitary disorder [Recovering/Resolving]
